FAERS Safety Report 12649885 (Version 2)
Quarter: 2016Q3

REPORT INFORMATION
  Report Type: Report from Study
  Country: JP (occurrence: JP)
  Receive Date: 20160812
  Receipt Date: 20160822
  Transmission Date: 20161109
  Serious: Yes (Hospitalization)
  Sender: FDA-Public Use
  Company Number: JP-ASTRAZENECA-2016SE85100

PATIENT
  Age: 66 Year
  Sex: Female
  Weight: 64 kg

DRUGS (25)
  1. ALLERMIST [Concomitant]
     Active Substance: FLUTICASONE FUROATE
     Route: 045
     Dates: end: 20150401
  2. RHEUMATREX [Concomitant]
     Active Substance: METHOTREXATE SODIUM
     Dosage: ADMINISTERED ON ONLY SATURDAY
     Route: 048
  3. CLARITHROMYCIN. [Concomitant]
     Active Substance: CLARITHROMYCIN
     Route: 048
     Dates: start: 20150306, end: 20150401
  4. PLAVIX [Concomitant]
     Active Substance: CLOPIDOGREL BISULFATE
     Route: 048
  5. MOBIC [Concomitant]
     Active Substance: MELOXICAM
     Route: 048
  6. CRESTOR [Concomitant]
     Active Substance: ROSUVASTATIN CALCIUM
     Route: 048
  7. OMEPRAZON [Concomitant]
     Active Substance: OMEPRAZOLE
     Route: 048
  8. METGLUCO [Concomitant]
     Active Substance: METFORMIN HYDROCHLORIDE
     Indication: TYPE 2 DIABETES MELLITUS
     Route: 048
  9. CALBLOCK [Concomitant]
     Active Substance: AZELNIDIPINE
     Route: 048
  10. FORXIGA [Suspect]
     Active Substance: DAPAGLIFLOZIN
     Indication: TYPE 2 DIABETES MELLITUS
     Dosage: MORNINGS
     Route: 048
     Dates: start: 20150305
  11. FRANDOL S [Concomitant]
     Active Substance: ISOSORBIDE DINITRATE
     Route: 062
  12. MOHRUS TAPE [Concomitant]
     Active Substance: KETOPROFEN
     Route: 062
  13. OPALMON [Concomitant]
     Active Substance: LIMAPROST
     Route: 048
  14. LANTUS [Concomitant]
     Active Substance: INSULIN GLARGINE
     Indication: TYPE 2 DIABETES MELLITUS
     Route: 065
     Dates: start: 20150525
  15. THYRADIN S [Concomitant]
     Active Substance: LEVOTHYROXINE SODIUM
     Route: 048
  16. CARBOCISTEINE [Concomitant]
     Active Substance: CARBOCYSTEINE
     Route: 048
     Dates: end: 20150401
  17. AMBROXOL HYDROCHLORIDE [Concomitant]
     Active Substance: AMBROXOL HYDROCHLORIDE
     Route: 048
     Dates: end: 20150401
  18. OLMETEC [Concomitant]
     Active Substance: OLMESARTAN MEDOXOMIL
     Route: 048
  19. BAYASPIRIN [Concomitant]
     Active Substance: ASPIRIN
     Route: 048
  20. MUCOSTA [Concomitant]
     Active Substance: REBAMIPIDE
     Route: 048
  21. RIMATIL [Concomitant]
     Active Substance: BUCILLAMINE
     Route: 048
  22. MAGNESIUM OXIDE. [Concomitant]
     Active Substance: MAGNESIUM OXIDE
     Route: 048
  23. LANTUS [Concomitant]
     Active Substance: INSULIN GLARGINE
     Indication: TYPE 2 DIABETES MELLITUS
     Route: 065
     Dates: end: 20150524
  24. MYONAL [Concomitant]
     Active Substance: EPERISONE HYDROCHLORIDE
     Route: 048
  25. RHEUMATREX [Concomitant]
     Active Substance: METHOTREXATE SODIUM
     Dosage: ON SUNDAY
     Route: 048

REACTIONS (2)
  - Ingrowing nail [Not Recovered/Not Resolved]
  - Dizziness [Recovering/Resolving]

NARRATIVE: CASE EVENT DATE: 20150318
